FAERS Safety Report 5927890-5 (Version None)
Quarter: 2008Q4

REPORT INFORMATION
  Report Type: 
  Country: None (occurrence: None)
  Receive Date: 20081022
  Receipt Date: 20081022
  Transmission Date: 20090506
  Serious: Yes (Life-Threatening, Hospitalization, Disabling)
  Sender: FDA-Public Use
  Company Number: None

PATIENT
  Age: 62 Year
  Sex: Female
  Weight: 113.3993 kg

DRUGS (1)
  1. MEGESTROL ACETATE [Suspect]
     Indication: CERVIX CARCINOMA
     Dosage: 40MG B.I.D. PO
     Route: 048
     Dates: start: 20080828, end: 20081021

REACTIONS (17)
  - ACNE [None]
  - AGEUSIA [None]
  - ALOPECIA [None]
  - ANOREXIA [None]
  - BLOOD POTASSIUM DECREASED [None]
  - BLOOD PRESSURE INCREASED [None]
  - DYSPNOEA [None]
  - FEELING ABNORMAL [None]
  - IMMUNE SYSTEM DISORDER [None]
  - INSOMNIA [None]
  - LOWER RESPIRATORY TRACT INFECTION [None]
  - MUSCULOSKELETAL STIFFNESS [None]
  - NASOPHARYNGITIS [None]
  - POLLAKIURIA [None]
  - PYREXIA [None]
  - THIRST [None]
  - UPPER RESPIRATORY TRACT INFECTION [None]
